FAERS Safety Report 7458836-9 (Version None)
Quarter: 2011Q2

REPORT INFORMATION
  Report Type: 
  Country: None (occurrence: None)
  Receive Date: 20110504
  Receipt Date: 20110428
  Transmission Date: 20111010
  Serious: Yes (Other)
  Sender: FDA-Public Use
  Company Number: MK-ROCHE-770675

PATIENT
  Sex: Male
  Weight: 63 kg

DRUGS (2)
  1. RIBAVIRIN [Suspect]
     Dosage: FREQUENCY: DAILY
     Route: 048
     Dates: start: 20110216, end: 20110330
  2. PEGINTERFERON ALFA-2A [Suspect]
     Route: 058
     Dates: start: 20110216, end: 20110330

REACTIONS (1)
  - CONVULSION [None]
